FAERS Safety Report 11179696 (Version 1)
Quarter: 2015Q2

REPORT INFORMATION
  Report Type: Spontaneous
  Country: US (occurrence: None)
  Receive Date: 20150609
  Receipt Date: 20150609
  Transmission Date: 20150821
  Serious: Yes (Other)
  Sender: FDA-Public Use
  Company Number: US-H14001-15-00855

PATIENT
  Age: 71 Year

DRUGS (2)
  1. RITUXIMAB [Suspect]
     Active Substance: RITUXIMAB
     Indication: CHRONIC LYMPHOCYTIC LEUKAEMIA
     Dosage: 1 IN 3 M, NOT OTHERWISE SPECIFIED
     Route: 042
     Dates: start: 20120105, end: 20140108
  2. DEXAMETHASONE (DEXAMETHASONE SODIUM PHOSPHATE) (UNKNOWN) (DEXAMETHASONE SODIUM PHOSPHATE) [Suspect]
     Active Substance: DEXAMETHASONE SODIUM PHOSPHATE
     Indication: CHRONIC LYMPHOCYTIC LEUKAEMIA
     Dosage: 1 IN 3 M, NOT OTHERWISE SPECIFIED
     Route: 042
     Dates: start: 20120105, end: 20140108

REACTIONS (1)
  - Colitis [None]

NARRATIVE: CASE EVENT DATE: 20120115
